FAERS Safety Report 5676698-7 (Version None)
Quarter: 2008Q2

REPORT INFORMATION
  Report Type: 
  Country: None (occurrence: None)
  Receive Date: 20080306
  Receipt Date: 20070109
  Transmission Date: 20081010
  Serious: Yes (Other)
  Sender: FDA-Public Use
  Company Number: 07-002

PATIENT
  Age: 54 Year
  Sex: Female
  Weight: 62.5964 kg

DRUGS (3)
  1. PHENTERMINE HCL [Suspect]
     Indication: DECREASED APPETITE
     Dosage: 1/2 - 1 TAB PO HS
     Route: 048
     Dates: start: 20060701, end: 20070101
  2. ACTONEL [Concomitant]
  3. IMITREX [Concomitant]

REACTIONS (2)
  - NECK PAIN [None]
  - THYROID NEOPLASM [None]
